FAERS Safety Report 8803146 (Version 2)
Quarter: 2012Q4

REPORT INFORMATION
  Report Type: 
  Country: US (occurrence: US)
  Receive Date: 20120924
  Receipt Date: 20121022
  Transmission Date: 20130627
  Serious: Yes (Death, Life-Threatening, Hospitalization)
  Sender: FDA-Public Use
  Company Number: US-JNJFOC-20120906283

PATIENT
  Age: 68 None
  Sex: Female

DRUGS (7)
  1. REMICADE [Suspect]
     Indication: RHEUMATOID ARTHRITIS
     Route: 042
  2. REMICADE [Suspect]
     Indication: RHEUMATOID ARTHRITIS
     Route: 042
     Dates: start: 201106
  3. UNSPECIFIED INGREDIENT [Suspect]
     Indication: TOXOPLASMOSIS
     Route: 065
  4. ANTIBIOTICS (NOT SPECIFIED) [Suspect]
     Indication: TOXOPLASMOSIS
     Route: 065
  5. BACTRIM [Suspect]
     Indication: TOXOPLASMOSIS
     Route: 065
  6. METHOTREXATE [Concomitant]
     Route: 065
  7. PREDNISONE [Concomitant]
     Route: 065

REACTIONS (4)
  - Toxoplasmosis [Fatal]
  - Stevens-Johnson syndrome [Fatal]
  - Sepsis [Fatal]
  - Drug ineffective [Unknown]
